FAERS Safety Report 7963105-4 (Version None)
Quarter: 2011Q4

REPORT INFORMATION
  Report Type: 
  Country: None (occurrence: None)
  Receive Date: 20111207
  Receipt Date: 20111130
  Transmission Date: 20120403
  Serious: Yes (Other)
  Sender: FDA-Public Use
  Company Number: US-ROCHE-786751

PATIENT
  Sex: Male
  Weight: 99.88 kg

DRUGS (1)
  1. ACCUTANE [Suspect]
     Indication: ACNE
     Route: 065
     Dates: start: 19890101, end: 19920101

REACTIONS (2)
  - COLITIS ULCERATIVE [None]
  - LIVER INJURY [None]
